FAERS Safety Report 20720963 (Version 1)
Quarter: 2022Q2

REPORT INFORMATION
  Report Type: Spontaneous
  Country: US (occurrence: US)
  Receive Date: 20220418
  Receipt Date: 20220418
  Transmission Date: 20220720
  Serious: Yes (Other)
  Sender: FDA-Public Use
  Company Number: US-AMERICAN REGENT INC-2022001029

PATIENT
  Age: 41 Year
  Sex: Female

DRUGS (1)
  1. FERRIC CARBOXYMALTOSE [Suspect]
     Active Substance: FERRIC CARBOXYMALTOSE
     Indication: Product used for unknown indication
     Dosage: UNK, SINGLE
     Route: 042
     Dates: start: 20220310, end: 20220310

REACTIONS (3)
  - Acute myocardial infarction [Unknown]
  - Cardiac disorder [Unknown]
  - Gastrointestinal disorder [Unknown]

NARRATIVE: CASE EVENT DATE: 20220310
